FAERS Safety Report 15431414 (Version 2)
Quarter: 2019Q4

REPORT INFORMATION
  Report Type: Report from Study
  Country: US (occurrence: US)
  Receive Date: 20180926
  Receipt Date: 20191108
  Transmission Date: 20200122
  Serious: Yes (Other)
  Sender: FDA-Public Use
  Company Number: US-SA-2018SA128494

PATIENT
  Sex: Female

DRUGS (7)
  1. EVENING PRIMROSE [Concomitant]
     Dosage: UNK
  2. REBIF [Suspect]
     Active Substance: INTERFERON BETA-1A
     Dosage: UNK UNK,UNK
     Route: 065
  3. TERIFLUNOMIDE. [Suspect]
     Active Substance: TERIFLUNOMIDE
     Indication: MULTIPLE SCLEROSIS
     Dosage: UNK
  4. ADDERALL [Concomitant]
     Active Substance: AMPHETAMINE ASPARTATE\AMPHETAMINE SULFATE\DEXTROAMPHETAMINE SACCHARATE\DEXTROAMPHETAMINE SULFATE
  5. BLACK COHOSH [CIMICIFUGA RACEMOSA] [Concomitant]
  6. VITAMIN B12 [VITAMIN B12 NOS] [Concomitant]
     Active Substance: CYANOCOBALAMIN
  7. VITAMIN D [VITAMIN D NOS] [Concomitant]
     Active Substance: VITAMIN D NOS

REACTIONS (7)
  - Pain in extremity [Unknown]
  - Fatigue [Unknown]
  - Diarrhoea [Unknown]
  - Hypersensitivity [Unknown]
  - Hot flush [Unknown]
  - Multiple sclerosis relapse [Unknown]
  - Alopecia [Unknown]
